FAERS Safety Report 19133064 (Version 2)
Quarter: 2021Q2

REPORT INFORMATION
  Report Type: Other
  Country: US (occurrence: US)
  Receive Date: 20210414
  Receipt Date: 20210511
  Transmission Date: 20210717
  Serious: Yes (Other)
  Sender: FDA-Public Use
  Company Number: US-ROCHE-2807813

PATIENT
  Sex: Female

DRUGS (1)
  1. XOLAIR [Suspect]
     Active Substance: OMALIZUMAB
     Indication: IDIOPATHIC URTICARIA
     Dosage: ONGOING? YES
     Route: 058

REACTIONS (3)
  - Drug ineffective [Unknown]
  - Anaphylactic shock [Recovered/Resolved]
  - Urticaria [Not Recovered/Not Resolved]
